FAERS Safety Report 15295453 (Version 4)
Quarter: 2018Q4

REPORT INFORMATION
  Report Type: Spontaneous
  Country: JP (occurrence: JP)
  Receive Date: 20180820
  Receipt Date: 20181230
  Transmission Date: 20190204
  Serious: Yes (Hospitalization, Other)
  Sender: FDA-Public Use
  Company Number: JP-TEVA-2018-JP-944861

PATIENT
  Age: 68 Year
  Sex: Male

DRUGS (11)
  1. RITUXIMAB. [Suspect]
     Active Substance: RITUXIMAB
     Indication: MANTLE CELL LYMPHOMA
     Route: 041
     Dates: start: 20180301
  2. ACICLOVIR [Suspect]
     Active Substance: ACYCLOVIR
     Dosage: UNK UNK, UNKNOWN FREQ.
     Route: 065
     Dates: start: 20180411
  3. GRANISETRON HYDROCHLORIDE. [Concomitant]
     Active Substance: GRANISETRON HYDROCHLORIDE
     Indication: VOMITING
     Route: 048
     Dates: start: 20180402
  4. IBUPROFEN. [Concomitant]
     Active Substance: IBUPROFEN
     Indication: INJECTION SITE REACTION
     Route: 048
     Dates: start: 20180402
  5. SULFAMETHOXAZOLE W/TRIMETHOPRIM [Suspect]
     Active Substance: SULFAMETHOXAZOLE\TRIMETHOPRIM
     Dosage: UNK UNK, UNKNOWN FREQ.
     Route: 065
     Dates: start: 20180413
  6. CHLORPHENIRAMINE MALEATE. [Concomitant]
     Active Substance: CHLORPHENIRAMINE MALEATE
     Indication: INJECTION SITE REACTION
     Route: 041
     Dates: start: 20180402
  7. BENDAMUSTINE HYDROCHLORIDE. [Suspect]
     Active Substance: BENDAMUSTINE HYDROCHLORIDE
     Route: 041
     Dates: start: 20180402
  8. ACICLOVIR [Suspect]
     Active Substance: ACYCLOVIR
     Indication: PROPHYLAXIS
     Dosage: 200 MILLIGRAM DAILY;
     Route: 048
     Dates: start: 20180327
  9. RITUXIMAB. [Suspect]
     Active Substance: RITUXIMAB
     Route: 041
     Dates: start: 20180402
  10. BENDAMUSTINE HYDROCHLORIDE. [Suspect]
     Active Substance: BENDAMUSTINE HYDROCHLORIDE
     Indication: MANTLE CELL LYMPHOMA
     Route: 041
     Dates: start: 20180301, end: 20180302
  11. SULFAMETHOXAZOLE W/TRIMETHOPRIM [Suspect]
     Active Substance: SULFAMETHOXAZOLE\TRIMETHOPRIM
     Indication: PROPHYLAXIS
     Route: 048
     Dates: start: 20180301, end: 20180317

REACTIONS (9)
  - Tumour lysis syndrome [Recovered/Resolved]
  - Drug hypersensitivity [Unknown]
  - Decreased appetite [Unknown]
  - Pyrexia [Recovered/Resolved]
  - Infection [Unknown]
  - Eczema [Unknown]
  - Drug eruption [Unknown]
  - Prescribed underdose [Unknown]
  - Hepatic function abnormal [Recovered/Resolved]

NARRATIVE: CASE EVENT DATE: 20180301
